FAERS Safety Report 13807419 (Version 1)
Quarter: 2017Q3

REPORT INFORMATION
  Report Type: Spontaneous
  Country: US (occurrence: US)
  Receive Date: 20170728
  Receipt Date: 20170728
  Transmission Date: 20171127
  Serious: No
  Sender: FDA-Public Use
  Company Number: US-TEIKOKU PHARMA USA-TPU2017-00231

PATIENT
  Sex: Female
  Weight: 78.09 kg

DRUGS (2)
  1. LIDOCAINE PATCH [Suspect]
     Active Substance: LIDOCAINE
     Indication: ARTHRITIS
     Dosage: APPLY 1 PATCH TO THE LOWER BACK ON THE ON THE SPINE AND SOMETIMES ON THE LEFT SIDE OF THE NECK
     Route: 061
  2. COUMADIN [Concomitant]
     Active Substance: WARFARIN SODIUM
     Indication: ANTICOAGULANT THERAPY

REACTIONS (1)
  - Body height decreased [Not Recovered/Not Resolved]
